FAERS Safety Report 16335901 (Version 2)
Quarter: 2019Q3

REPORT INFORMATION
  Report Type: Report from Study
  Country: US (occurrence: US)
  Receive Date: 20190521
  Receipt Date: 20190704
  Transmission Date: 20191004
  Serious: No
  Sender: FDA-Public Use
  Company Number: US-009507513-1904USA012380

PATIENT
  Age: 51 Year
  Sex: Female

DRUGS (3)
  1. PROVENTIL [Suspect]
     Active Substance: ALBUTEROL
     Dosage: 90MCG, ^2 PUFFS EVERY 4 HOURS^
     Route: 055
     Dates: start: 2017
  2. BREO ELLIPTA [Concomitant]
     Active Substance: FLUTICASONE FUROATE\VILANTEROL TRIFENATATE
  3. PROVENTIL [Suspect]
     Active Substance: ALBUTEROL
     Indication: CHRONIC OBSTRUCTIVE PULMONARY DISEASE
     Dosage: 90MCG, ^2 PUFFS EVERY 4 HOURS^
     Route: 055
     Dates: start: 2017

REACTIONS (4)
  - Product quality issue [Unknown]
  - Dyspnoea [Recovered/Resolved]
  - Poor quality device used [Unknown]
  - Underdose [Unknown]

NARRATIVE: CASE EVENT DATE: 201902
